FAERS Safety Report 20578520 (Version 1)
Quarter: 2022Q1

REPORT INFORMATION
  Report Type: Spontaneous
  Country: US (occurrence: US)
  Receive Date: 20220310
  Receipt Date: 20220310
  Transmission Date: 20220423
  Serious: No
  Sender: FDA-Public Use
  Company Number: US-PFIZER INC-202200239402

PATIENT
  Age: 67 Year
  Sex: Female

DRUGS (12)
  1. XELJANZ XR [Suspect]
     Active Substance: TOFACITINIB CITRATE
     Dosage: 11 MG, 1X/DAY
     Route: 048
  2. BENADRYL ALLERGY RELIEF [Concomitant]
     Dosage: UNK
  3. CLARITIN-D NOS [Concomitant]
     Active Substance: LORATADINE\PSEUDOEPHEDRINE SULFATE
     Dosage: UNK (12 HOURS)
  4. EPIPEN [Concomitant]
     Active Substance: EPINEPHRINE
     Dosage: UNK
  5. FLONASE [Concomitant]
     Active Substance: FLUTICASONE PROPIONATE
     Dosage: UNK
  6. FOLIC ACID [Concomitant]
     Active Substance: FOLIC ACID
     Dosage: UNK
  7. KEVZARA [Concomitant]
     Active Substance: SARILUMAB
     Dosage: UNK
  8. NABUMETONE [Concomitant]
     Active Substance: NABUMETONE
     Dosage: UNK
  9. PROBIOTICS NOS [Concomitant]
     Active Substance: PROBIOTICS NOS
     Dosage: UNK UNK, DAILY
  10. SHINGRIX [Concomitant]
     Active Substance: RECOMBINANT VARICELLA ZOSTER VIRUS (VZV) GLYCOPROTEIN E
     Dosage: UNK
  11. SYNTHROID [Concomitant]
     Active Substance: LEVOTHYROXINE SODIUM
     Dosage: UNK
  12. VITAMIN D3 [Concomitant]
     Active Substance: CHOLECALCIFEROL
     Dosage: UNK

REACTIONS (6)
  - Pain [Recovering/Resolving]
  - Swelling [Recovering/Resolving]
  - Arthritis [Recovering/Resolving]
  - Illness [Unknown]
  - Suspected COVID-19 [Unknown]
  - Product dose omission issue [Unknown]
